FAERS Safety Report 4302997-7 (Version None)
Quarter: 2004Q1

REPORT INFORMATION
  Report Type: 
  Country: None (occurrence: None)
  Receive Date: 20040224
  Receipt Date: 20040126
  Transmission Date: 20041129
  Serious: Yes (Hospitalization)
  Sender: FDA-Public Use
  Company Number: JP-GLAXOSMITHKLINE-B0321288A

PATIENT
  Age: 83 Year
  Sex: Female

DRUGS (17)
  1. ACYCLOVIR [Suspect]
     Indication: ENCEPHALITIS VIRAL
     Route: 042
     Dates: start: 20040115
  2. CLINDAMYCIN PHOSPHATE [Concomitant]
     Dosage: 1200MG PER DAY
     Route: 042
     Dates: start: 20040115, end: 20040128
  3. IMIPENEM + CILASTATIN SODIUM [Concomitant]
     Dosage: 1G PER DAY
     Route: 042
     Dates: start: 20040115, end: 20040116
  4. FAMOTIDINE [Concomitant]
     Dosage: 20MG PER DAY
     Route: 042
     Dates: start: 20040115
  5. GABEXATE MESILATE [Concomitant]
     Dosage: 1500MG PER DAY
     Route: 042
     Dates: start: 20040116, end: 20040121
  6. GABEXATE MESILATE [Concomitant]
     Dosage: 1000MG PER DAY
     Route: 042
     Dates: start: 20040122, end: 20040123
  7. DEXAMETHASONE SODIUM PHOSPHATE [Concomitant]
     Dosage: 12MG PER DAY
     Route: 042
     Dates: start: 20040116, end: 20040118
  8. DEXAMETHASONE SODIUM PHOSPHATE [Concomitant]
     Dosage: 8MG PER DAY
     Route: 042
     Dates: start: 20040119, end: 20040121
  9. DEXAMETHASONE SODIUM PHOSPHATE [Concomitant]
     Dosage: 4MG PER DAY
     Route: 042
     Dates: start: 20040122, end: 20040124
  10. PANIPENEM BETAMIPRON [Concomitant]
     Dosage: 1G PER DAY
     Route: 042
     Dates: start: 20040117, end: 20040128
  11. FLUCONAZOLE [Concomitant]
     Dosage: 100MG PER DAY
     Route: 042
     Dates: start: 20040121, end: 20040123
  12. FLUCONAZOLE [Concomitant]
     Dosage: 200MG PER DAY
     Route: 042
     Dates: start: 20040125, end: 20040125
  13. MICAFUNGIN [Concomitant]
     Dosage: 100MG PER DAY
     Route: 042
     Dates: start: 20040127
  14. LACTATED RINGER SOLUTION [Concomitant]
     Dosage: 500ML PER DAY
     Route: 042
     Dates: start: 20040115, end: 20040115
  15. DOPAMINE HYDROCHLORIDE [Concomitant]
     Route: 042
     Dates: start: 20040115, end: 20040204
  16. FRUSEMIDE [Concomitant]
     Dosage: 20MG PER DAY
     Route: 042
     Dates: start: 20040115, end: 20040117
  17. DIAZEPAM [Concomitant]
     Dosage: 5MG PER DAY
     Route: 042
     Dates: start: 20040115, end: 20040116

REACTIONS (4)
  - DEPRESSED LEVEL OF CONSCIOUSNESS [None]
  - NERVOUS SYSTEM DISORDER [None]
  - PYREXIA [None]
  - RESPIRATORY DEPRESSION [None]
